FAERS Safety Report 14385124 (Version 1)
Quarter: 2018Q1

REPORT INFORMATION
  Report Type: Spontaneous
  Country: US (occurrence: US)
  Receive Date: 20180115
  Receipt Date: 20180115
  Transmission Date: 20180509
  Serious: Yes (Disabling)
  Sender: FDA-Public Use
  Company Number: US-LPDUSPRD-20171680

PATIENT
  Sex: Female

DRUGS (1)
  1. INJECTAFER [Suspect]
     Active Substance: FERRIC CARBOXYMALTOSE
     Dosage: 750 MG X 2
     Route: 042
     Dates: start: 201704

REACTIONS (8)
  - Loss of personal independence in daily activities [Recovered/Resolved with Sequelae]
  - Serum ferritin increased [Not Recovered/Not Resolved]
  - Food intolerance [Not Recovered/Not Resolved]
  - Malaise [Not Recovered/Not Resolved]
  - Exercise tolerance decreased [Unknown]
  - Blood phosphorus decreased [Unknown]
  - Asthenia [Unknown]
  - Hepatic function abnormal [Unknown]

NARRATIVE: CASE EVENT DATE: 2017
